FAERS Safety Report 6733789-7 (Version None)
Quarter: 2010Q2

REPORT INFORMATION
  Report Type: 
  Country: None (occurrence: None)
  Receive Date: 20100520
  Receipt Date: 20100511
  Transmission Date: 20101027
  Serious: Yes (Other)
  Sender: FDA-Public Use
  Company Number: BR-SANOFI-AVENTIS-2010SA027631

PATIENT
  Sex: Female

DRUGS (11)
  1. LANTUS [Suspect]
     Route: 058
  2. OPTIPEN [Suspect]
  3. AAS PROTECT [Concomitant]
     Route: 048
  4. PLAVIX [Concomitant]
     Route: 048
  5. IRBESARTAN [Concomitant]
     Route: 048
  6. MONOCORDIL [Concomitant]
     Dosage: 2 TABLETS
     Route: 048
  7. DILACORON [Concomitant]
     Route: 048
  8. INDAPEN [Concomitant]
     Route: 048
  9. ROSUVASTATIN CALCIUM [Concomitant]
  10. JANUMET [Concomitant]
     Dosage: 2 50/750 MG TABLETS
     Route: 048
  11. GLUCOBAY [Concomitant]
     Route: 048

REACTIONS (5)
  - ARTERIAL DISORDER [None]
  - FEELING ABNORMAL [None]
  - PAIN [None]
  - SYNCOPE [None]
  - VOMITING [None]
